FAERS Safety Report 15304713 (Version 1)
Quarter: 2018Q3

REPORT INFORMATION
  Report Type: Spontaneous
  Country: DE (occurrence: DE)
  Receive Date: 20180821
  Receipt Date: 20180821
  Transmission Date: 20181010
  Serious: Yes (Congenital Anomaly, Other)
  Sender: FDA-Public Use
  Company Number: DE-PFIZER INC-2018333327

PATIENT
  Sex: Female
  Weight: 3.02 kg

DRUGS (7)
  1. SERTRALINE HCL [Suspect]
     Active Substance: SERTRALINE HYDROCHLORIDE
     Indication: DEPRESSION
     Dosage: 200 MG, 1X/DAY, 0. ? 38. GESTATIONAL WEEK
     Route: 064
     Dates: start: 20170320, end: 20171211
  2. METOPROLOL. [Suspect]
     Active Substance: METOPROLOL
     Indication: GESTATIONAL HYPERTENSION
     Dosage: 125 MG, 1X/DAY, 32. ? 38. GESTATIONAL WEEK
     Route: 064
  3. LANTUS [Concomitant]
     Active Substance: INSULIN GLARGINE
     Indication: GESTATIONAL DIABETES
     Dosage: 12 IU, 1X/DAY, 24. ? 25. GESTATIONAL WEEK
     Route: 064
  4. PREDNISOLONE. [Concomitant]
     Active Substance: PREDNISOLONE
     Indication: PROPHYLAXIS OF ABORTION
     Dosage: 15 MG, 1X/DAY, 0. ? 20. GESTATIONAL WEEK
     Route: 064
  5. FOLIC ACID. [Concomitant]
     Active Substance: FOLIC ACID
     Indication: PROPHYLAXIS OF NEURAL TUBE DEFECT
     Dosage: 5 MG, 1X/DAY, FOLIC ACID RATIOPHARM, 0. ? 38. GESTATIONAL WEEK
     Route: 064
     Dates: start: 20170320, end: 20171211
  6. ACTRAPID [Concomitant]
     Active Substance: INSULIN HUMAN
     Indication: GESTATIONAL DIABETES
     Dosage: 28 [IU/D (UP TO 10) ], ACTRAPID FLEXPEN, 25. ? 38. GESTATIONAL WEEK
     Route: 064
  7. L?THYROXIN [Concomitant]
     Active Substance: LEVOTHYROXINE SODIUM
     Indication: AUTOIMMUNE THYROIDITIS
     Dosage: 200 [?G/D ]/ VARYING DOSAGES BETWEEN 150 AND 200?G/D, 0. ? 38. GESTATIONAL WEEK
     Route: 064
     Dates: start: 20170320, end: 20171211

REACTIONS (4)
  - Exposure during pregnancy [Unknown]
  - Agitation neonatal [Recovered/Resolved]
  - Congenital hydronephrosis [Recovering/Resolving]
  - Renal dysplasia [Unknown]
